FAERS Safety Report 7618082-2 (Version None)
Quarter: 2011Q3

REPORT INFORMATION
  Report Type: 
  Country: None (occurrence: None)
  Receive Date: 20110718
  Receipt Date: 20110708
  Transmission Date: 20111222
  Serious: Yes (Hospitalization)
  Sender: FDA-Public Use
  Company Number: US-CELGENEUS-163-21880-11062228

PATIENT
  Sex: Male

DRUGS (4)
  1. REVLIMID [Suspect]
     Indication: MULTIPLE MYELOMA
     Dosage: 25 MILLIGRAM
     Route: 048
     Dates: start: 20110527, end: 20110609
  2. TRANSFUSION [Concomitant]
     Route: 051
  3. METOPROLOL TARTRATE [Concomitant]
     Dosage: 25 MILLIGRAM
     Route: 048
  4. WARFARIN SODIUM [Concomitant]
     Dosage: 5 MILLIGRAM
     Route: 048

REACTIONS (2)
  - ANAEMIA [None]
  - SUPRAVENTRICULAR TACHYCARDIA [None]
